FAERS Safety Report 12459238 (Version 1)
Quarter: 2016Q2

REPORT INFORMATION
  Report Type: Spontaneous
  Country: US (occurrence: None)
  Receive Date: 20160610
  Receipt Date: 20160610
  Transmission Date: 20160815
  Serious: No
  Sender: FDA-Public Use
  Company Number: None

PATIENT
  Age: 83 Year
  Sex: Male

DRUGS (4)
  1. DUTASTERIDE. [Concomitant]
     Active Substance: DUTASTERIDE
  2. ZOMETA [Concomitant]
     Active Substance: ZOLEDRONIC ACID
  3. ZYTIGA [Suspect]
     Active Substance: ABIRATERONE ACETATE
     Indication: PROSTATE CANCER
     Route: 048
     Dates: start: 201408
  4. LUPRON [Concomitant]
     Active Substance: LEUPROLIDE ACETATE

REACTIONS (2)
  - Flushing [None]
  - Fatigue [None]

NARRATIVE: CASE EVENT DATE: 2016
